FAERS Safety Report 16137170 (Version 1)
Quarter: 2019Q2

REPORT INFORMATION
  Report Type: Spontaneous
  Country: FR (occurrence: FR)
  Receive Date: 20190401
  Receipt Date: 20190401
  Transmission Date: 20190711
  Serious: Yes (Other)
  Sender: FDA-Public Use
  Company Number: FR-SUN PHARMACEUTICAL INDUSTRIES LTD-2019RR-203594

PATIENT
  Age: 26 Year
  Sex: Male
  Weight: 85 kg

DRUGS (5)
  1. PARACETAMOL [Suspect]
     Active Substance: ACETAMINOPHEN
     Indication: PAIN
     Dosage: 4 GRAM, PRN, AS NECESSARY
     Route: 048
     Dates: start: 20181220
  2. PREDNISOLONE. [Suspect]
     Active Substance: PREDNISOLONE
     Indication: LUNG NEOPLASM
     Dosage: 60MG PDT 10JRS ; 30 PDT 7JRS ; 20 PDT 7JRS ; 10 PDT 7JRS ()
     Route: 048
     Dates: start: 20181220, end: 20190207
  3. PANTOPRAZOLE MYLAN 40 MG, COMPRIME GASTRO-RESISTANT [Suspect]
     Active Substance: PANTOPRAZOLE SODIUM
     Indication: GASTROINTESTINAL DISORDER PROPHYLAXIS
     Dosage: 40 MILLIGRAM, DAILY
     Route: 048
     Dates: start: 20181220
  4. CALCIDOSE VITAMINE D, POUDRE ORALE EN SACHET-DOSE [Suspect]
     Active Substance: CALCIUM\CHOLECALCIFEROL
     Indication: PROPHYLAXIS
     Dosage: 2 DOSAGE FORM, DAILY
     Route: 048
     Dates: start: 20181220, end: 20181230
  5. ALECENSA [Suspect]
     Active Substance: ALECTINIB HYDROCHLORIDE
     Indication: LUNG NEOPLASM
     Dosage: 8 DOSAGE FORM, DAILY
     Route: 048
     Dates: start: 20181219

REACTIONS (4)
  - Rash [Recovering/Resolving]
  - Pruritus [Recovering/Resolving]
  - Dermatitis acneiform [Not Recovered/Not Resolved]
  - Myalgia [Recovered/Resolved]

NARRATIVE: CASE EVENT DATE: 20181227
